FAERS Safety Report 8127089-0 (Version None)
Quarter: 2012Q1

REPORT INFORMATION
  Report Type: 
  Country: None (occurrence: None)
  Receive Date: 20120210
  Receipt Date: 20120203
  Transmission Date: 20120608
  Serious: Yes (Hospitalization)
  Sender: FDA-Public Use
  Company Number: BR-US-EMD SERONO, INC.-7111550

PATIENT
  Sex: Female

DRUGS (1)
  1. REBIF [Suspect]
     Indication: RELAPSING-REMITTING MULTIPLE SCLEROSIS
     Dates: start: 20110401

REACTIONS (7)
  - THYROXINE ABNORMAL [None]
  - HEPATIC STEATOSIS [None]
  - BLOOD TRIGLYCERIDES INCREASED [None]
  - ALANINE AMINOTRANSFERASE INCREASED [None]
  - BLOOD THYROID STIMULATING HORMONE INCREASED [None]
  - BLOOD URIC ACID INCREASED [None]
  - VITAMIN D DECREASED [None]
